FAERS Safety Report 17541844 (Version 2)
Quarter: 2020Q1

REPORT INFORMATION
  Report Type: Report from Study
  Country: None (occurrence: FR)
  Receive Date: 20200313
  Receipt Date: 20200326
  Transmission Date: 20200409
  Serious: Yes (Hospitalization)
  Sender: FDA-Public Use
  Company Number: FR-ABBVIE-20K-056-3316262-00

PATIENT
  Age: 21 Year
  Sex: Female
  Weight: 52 kg

DRUGS (1)
  1. HUMIRA [Suspect]
     Active Substance: ADALIMUMAB
     Indication: COLITIS
     Route: 058
     Dates: start: 20200220

REACTIONS (3)
  - Off label use [Unknown]
  - Hospitalisation [Unknown]
  - Hyperleukocytosis [Recovering/Resolving]

NARRATIVE: CASE EVENT DATE: 202003
